FAERS Safety Report 23811263 (Version 1)
Quarter: 2024Q2

REPORT INFORMATION
  Report Type: Spontaneous
  Country: CN (occurrence: CN)
  Receive Date: 20240502
  Receipt Date: 20240502
  Transmission Date: 20240715
  Serious: Yes (Other)
  Sender: FDA-Public Use
  Company Number: CN-BEIGENE-BGN-2024-006467

PATIENT

DRUGS (4)
  1. TISLELIZUMAB [Suspect]
     Active Substance: TISLELIZUMAB
     Indication: Lung squamous cell carcinoma metastatic
     Dosage: 200 MILLIGRAM, Q3WK, D1
     Route: 041
     Dates: start: 20240411
  2. CARBOPLATIN [Suspect]
     Active Substance: CARBOPLATIN
     Indication: Lung squamous cell carcinoma metastatic
     Dosage: 30 MILLIGRAM, Q3WK, D1
     Route: 041
     Dates: start: 20240411
  3. PACLITAXEL [Suspect]
     Active Substance: PACLITAXEL
     Indication: Lung squamous cell carcinoma metastatic
     Dosage: 0.24 GRAM, Q3WK, D1
     Route: 041
     Dates: start: 20240411
  4. DENOSUMAB [Concomitant]
     Active Substance: DENOSUMAB
     Indication: Lung squamous cell carcinoma metastatic
     Dosage: 120 MILLIGRAM, Q4WK, D1
     Route: 058
     Dates: start: 20240411

REACTIONS (5)
  - Cardiac failure [Recovering/Resolving]
  - Myelosuppression [Recovering/Resolving]
  - Pyrexia [Unknown]
  - Cough [Unknown]
  - Productive cough [Unknown]

NARRATIVE: CASE EVENT DATE: 20240421
